FAERS Safety Report 7209771-2 (Version None)
Quarter: 2011Q1

REPORT INFORMATION
  Report Type: 
  Country: None (occurrence: None)
  Receive Date: 20110104
  Receipt Date: 20101221
  Transmission Date: 20110831
  Serious: Yes (Hospitalization)
  Sender: FDA-Public Use
  Company Number: US-GILEAD-2010-0034184

PATIENT
  Sex: Female

DRUGS (1)
  1. LETAIRIS [Suspect]
     Indication: PULMONARY ARTERIAL HYPERTENSION
     Route: 048
     Dates: start: 20101109, end: 20101203

REACTIONS (6)
  - CONFUSIONAL STATE [None]
  - NASAL CONGESTION [None]
  - DISORIENTATION [None]
  - FEELING ABNORMAL [None]
  - DYSPNOEA [None]
  - UNEVALUABLE EVENT [None]
